FAERS Safety Report 5400416-0 (Version None)
Quarter: 2007Q3

REPORT INFORMATION
  Report Type: 
  Country: None (occurrence: None)
  Receive Date: 20070730
  Receipt Date: 20070725
  Transmission Date: 20080115
  Serious: Yes (Hospitalization)
  Sender: FDA-Public Use
  Company Number: B0480644A

PATIENT
  Age: 54 Year
  Sex: Female

DRUGS (2)
  1. AUGMENTIN '125' [Suspect]
     Route: 065
     Dates: start: 20070519, end: 20070528
  2. ANTIVITAMINS K [Concomitant]
     Route: 065

REACTIONS (1)
  - HEPATOCELLULAR DAMAGE [None]
